FAERS Safety Report 7494873-6 (Version None)
Quarter: 2011Q2

REPORT INFORMATION
  Report Type: 
  Country: None (occurrence: None)
  Receive Date: 20110520
  Receipt Date: 20110504
  Transmission Date: 20111010
  Serious: No
  Sender: FDA-Public Use
  Company Number: US-B.I. PHARMACEUTICALS,INC./RIDGEFIELD-2011-BP-12396BP

PATIENT
  Sex: Female

DRUGS (4)
  1. ENABLEX [Concomitant]
     Indication: BLADDER DISORDER
  2. PRADAXA [Suspect]
     Indication: ATRIAL FIBRILLATION
     Dosage: 300 MG
     Route: 048
     Dates: start: 20110304
  3. SYNTHROID [Concomitant]
     Indication: HYPOTHYROIDISM
  4. VITAMIN TAB [Concomitant]

REACTIONS (3)
  - GASTROINTESTINAL SOUNDS ABNORMAL [None]
  - BALANCE DISORDER [None]
  - FLATULENCE [None]
